FAERS Safety Report 7518476-X (Version None)
Quarter: 2011Q2

REPORT INFORMATION
  Report Type: 
  Country: None (occurrence: None)
  Receive Date: 20110601
  Receipt Date: 20110601
  Transmission Date: 20111010
  Serious: Yes (Other)
  Sender: FDA-Public Use
  Company Number: None

PATIENT
  Age: 28 Year
  Sex: Male
  Weight: 58.9676 kg

DRUGS (1)
  1. ZOLPIDEM TARTRATE [Suspect]
     Indication: INSOMNIA
     Dosage: 1/2 A PILL EACH NIGHT PO
     Route: 048
     Dates: start: 20110526, end: 20110527

REACTIONS (3)
  - SOMNOLENCE [None]
  - HYPERSOMNIA [None]
  - DEPRESSED LEVEL OF CONSCIOUSNESS [None]
